FAERS Safety Report 20962722 (Version 2)
Quarter: 2022Q3

REPORT INFORMATION
  Report Type: Spontaneous
  Country: US (occurrence: US)
  Receive Date: 20220615
  Receipt Date: 20220719
  Transmission Date: 20221026
  Serious: No
  Sender: FDA-Public Use
  Company Number: US-PFIZER INC-202200829223

PATIENT
  Age: 64 Year
  Sex: Male
  Weight: 72.562 kg

DRUGS (3)
  1. PAXLOVID [Suspect]
     Active Substance: NIRMATRELVIR\RITONAVIR
     Indication: COVID-19 treatment
     Dosage: 2X/DAY (ONE BID X 5DAY)
     Route: 048
     Dates: start: 20220531, end: 20220604
  2. ADALIMUMAB [Concomitant]
     Active Substance: ADALIMUMAB
     Dosage: UNK
     Dates: start: 20191017
  3. CRESTOR [Concomitant]
     Active Substance: ROSUVASTATIN CALCIUM
     Dosage: UNK
     Dates: start: 201601

REACTIONS (6)
  - Rhinorrhoea [Recovered/Resolved]
  - COVID-19 [Recovered/Resolved]
  - Disease recurrence [Recovered/Resolved]
  - Pyrexia [Recovered/Resolved]
  - Nasal congestion [Recovered/Resolved]
  - Illness [Recovered/Resolved]

NARRATIVE: CASE EVENT DATE: 20220608
